FAERS Safety Report 19070826 (Version 1)
Quarter: 2021Q1

REPORT INFORMATION
  Report Type: Other
  Country: GB (occurrence: GB)
  Receive Date: 20210330
  Receipt Date: 20210330
  Transmission Date: 20210420
  Serious: Yes (Hospitalization, Other)
  Sender: FDA-Public Use
  Company Number: GB-CELLTRION INC.-2021GB001607

PATIENT

DRUGS (5)
  1. ZAPAIN [Suspect]
     Active Substance: ACETAMINOPHEN\CODEINE PHOSPHATE
     Indication: PRODUCT USED FOR UNKNOWN INDICATION
     Dosage: UNKNOWN
     Route: 065
  2. IMRALDI [Suspect]
     Active Substance: ADALIMUMAB
     Indication: COLITIS ULCERATIVE
     Dosage: 160 MG, WEEK 0
     Route: 058
     Dates: start: 20200716
  3. IMRALDI [Suspect]
     Active Substance: ADALIMUMAB
     Dosage: 40 MG, Q2WEEKS, MAINTENANCE
     Route: 058
  4. INFLIXIMAB (UNKNOWN) [Suspect]
     Active Substance: INFLIXIMAB
     Indication: PRODUCT USED FOR UNKNOWN INDICATION
     Dosage: UNKNOWN
     Route: 065
  5. IMRALDI [Suspect]
     Active Substance: ADALIMUMAB
     Dosage: 80 MG, WEEK 2
     Route: 058

REACTIONS (11)
  - Malaise [Unknown]
  - Nausea [Unknown]
  - Depressed mood [Unknown]
  - Colitis ulcerative [Unknown]
  - Arthritis [Unknown]
  - Back pain [Unknown]
  - Rectal haemorrhage [Unknown]
  - Insomnia [Unknown]
  - Vomiting [Unknown]
  - Fistula [Unknown]
  - Constipation [Unknown]
